FAERS Safety Report 6339573-0 (Version None)
Quarter: 2009Q3

REPORT INFORMATION
  Report Type: 
  Country: None (occurrence: None)
  Receive Date: 20090827
  Receipt Date: 20090720
  Transmission Date: 20100115
  Serious: No
  Sender: FDA-Public Use
  Company Number: 001300

PATIENT
  Age: 62 Year

DRUGS (2)
  1. LACOSAMIDE [Suspect]
     Indication: FACIAL PAIN
     Dosage: (50 MG BID ORAL)
     Route: 048
  2. LACOSAMIDE [Suspect]
     Indication: PORPHYRIA
     Dosage: (50 MG BID ORAL)
     Route: 048

REACTIONS (3)
  - ABDOMINAL PAIN [None]
  - FLANK PAIN [None]
  - OFF LABEL USE [None]
